FAERS Safety Report 8057080-4 (Version None)
Quarter: 2012Q1

REPORT INFORMATION
  Report Type: 
  Country: None (occurrence: None)
  Receive Date: 20120119
  Receipt Date: 20120112
  Transmission Date: 20120608
  Serious: Yes (Other)
  Sender: FDA-Public Use
  Company Number: US-US-EMD SERONO, INC.-7106863

PATIENT
  Sex: Female

DRUGS (1)
  1. REBIF [Suspect]
     Indication: MULTIPLE SCLEROSIS
     Route: 058
     Dates: start: 20111112, end: 20120109

REACTIONS (6)
  - NAUSEA [None]
  - DIARRHOEA [None]
  - WEIGHT DECREASED [None]
  - PNEUMONIA [None]
  - PAIN [None]
  - VOMITING [None]
